FAERS Safety Report 7194241-0 (Version None)
Quarter: 2010Q4

REPORT INFORMATION
  Report Type: 
  Country: None (occurrence: None)
  Receive Date: 20101223
  Receipt Date: 20101215
  Transmission Date: 20110411
  Serious: Yes (Other)
  Sender: FDA-Public Use
  Company Number: US-ELI_LILLY_AND_COMPANY-US201012005176

PATIENT
  Age: 50 Year
  Sex: Male

DRUGS (2)
  1. EFFIENT [Suspect]
     Dosage: 10 MG, UNK
  2. ASPIRIN [Concomitant]

REACTIONS (3)
  - BACK PAIN [None]
  - RENAL CYST RUPTURED [None]
  - RENAL HAEMORRHAGE [None]
